FAERS Safety Report 5642133-8 (Version None)
Quarter: 2008Q1

REPORT INFORMATION
  Report Type: 
  Country: None (occurrence: None)
  Receive Date: 20080131
  Receipt Date: 20071203
  Transmission Date: 20080703
  Serious: No
  Sender: FDA-Public Use
  Company Number: US200712000411

PATIENT
  Age: 68 Year
  Sex: Female

DRUGS (2)
  1. BYETTA [Suspect]
     Dates: end: 20060101
  2. HUMULIN 30/70      (INSULIN HUMAN INJECTION, ISOPHANE) [Concomitant]

REACTIONS (1)
  - DYSKINESIA [None]
